FAERS Safety Report 8279219-8 (Version None)
Quarter: 2012Q2

REPORT INFORMATION
  Report Type: 
  Country: None (occurrence: None)
  Receive Date: 20120412
  Receipt Date: 20120111
  Transmission Date: 20120825
  Serious: No
  Sender: FDA-Public Use
  Company Number: US-ASTRAZENECA-2011SE74533

PATIENT
  Age: 32 Year
  Sex: Male

DRUGS (3)
  1. NEXIUM [Suspect]
     Route: 048
  2. NEXIUM [Suspect]
     Route: 048
  3. SEROQUEL [Concomitant]

REACTIONS (3)
  - PAIN [None]
  - DRUG DOSE OMISSION [None]
  - DRUG PRESCRIBING ERROR [None]
